FAERS Safety Report 10029458 (Version 1)
Quarter: 2014Q1

REPORT INFORMATION
  Report Type: Report from Study
  Country: BE (occurrence: BE)
  Receive Date: 20140322
  Receipt Date: 20140322
  Transmission Date: 20141002
  Serious: Yes (Disabling)
  Sender: FDA-Public Use
  Company Number: PHHY2014BE033603

PATIENT
  Age: 77 Year
  Sex: Female

DRUGS (2)
  1. AFINITOR [Suspect]
     Indication: BREAST CANCER
     Dosage: 10 MG, QD
     Route: 048
     Dates: start: 20131212, end: 20131225
  2. EXEMESTANE [Concomitant]
     Indication: BREAST CANCER

REACTIONS (2)
  - Ageusia [Recovering/Resolving]
  - Dysgeusia [Recovering/Resolving]
